FAERS Safety Report 8915174 (Version 5)
Quarter: 2013Q4

REPORT INFORMATION
  Report Type: Report from Study
  Country: JP (occurrence: JP)
  Receive Date: 20121116
  Receipt Date: 20131108
  Transmission Date: 20140711
  Serious: Yes (Other)
  Sender: FDA-Public Use
  Company Number: JP-VERTEX PHARMACEUTICAL INC.-2012-024503

PATIENT
  Age: 60 Year
  Sex: Female

DRUGS (12)
  1. VX-950 (TELAPREVIR) [Suspect]
     Indication: CHRONIC HEPATITIS C
     Dosage: 1500 MG, QD
     Route: 048
     Dates: start: 20120912, end: 20121204
  2. PEGINTERFERON ALFA-2B [Suspect]
     Indication: CHRONIC HEPATITIS C
     Dosage: 60 ?G/KG, QW
     Route: 058
     Dates: start: 20120912, end: 20121212
  3. PEGINTERFERON ALFA-2B [Suspect]
     Dosage: 80 ?G/KG, QW
     Dates: start: 20121219, end: 20130220
  4. PREDNISOLONE [Suspect]
     Indication: ADVERSE EVENT
     Dosage: 25 MG, QD
     Route: 048
     Dates: start: 20120915, end: 20120923
  5. PREDNISOLONE [Suspect]
     Dosage: 35 MG, QD
     Route: 048
     Dates: start: 20120924, end: 20121002
  6. PREDNISOLONE [Suspect]
     Dosage: 30 MG, QD
     Route: 048
     Dates: start: 20121003, end: 20121016
  7. PREDNISOLONE [Suspect]
     Dosage: 25 MG, QD
     Route: 048
     Dates: start: 20121017, end: 20121204
  8. PREDNISOLONE [Suspect]
     Dosage: 15 MG, QD
     Route: 048
     Dates: start: 20121205, end: 20121218
  9. PREDNISOLONE [Suspect]
     Dosage: 10 MG, QD
     Route: 048
     Dates: start: 20121219, end: 20121225
  10. PREDNISOLONE [Suspect]
     Dosage: 5 MG, QD
     Route: 048
     Dates: start: 20121226, end: 20130109
  11. RIBAVIRIN [Concomitant]
     Dosage: 400 MG, QD
     Route: 048
     Dates: start: 20120912, end: 20121127
  12. RIBAVIRIN [Concomitant]
     Dosage: 600 MG, QD
     Route: 048
     Dates: start: 20121128, end: 20130227

REACTIONS (1)
  - Toxic skin eruption [Recovered/Resolved]
